FAERS Safety Report 17962035 (Version 6)
Quarter: 2021Q3

REPORT INFORMATION
  Report Type: Spontaneous
  Country: US (occurrence: US)
  Receive Date: 20200630
  Receipt Date: 20210929
  Transmission Date: 20211014
  Serious: Yes (Other)
  Sender: FDA-Public Use
  Company Number: US-PFIZER INC-2018352366

PATIENT
  Age: 62 Year
  Sex: Female

DRUGS (7)
  1. LYRICA [Suspect]
     Active Substance: PREGABALIN
     Indication: OEDEMA
  2. LYRICA [Suspect]
     Active Substance: PREGABALIN
     Indication: INTERVERTEBRAL DISC DEGENERATION
     Dosage: 75 MG, ONCE A DAY
     Route: 048
  3. LYRICA [Suspect]
     Active Substance: PREGABALIN
     Indication: GROIN PAIN
     Dosage: 100 MG, ONCE A DAY
  4. LYRICA [Suspect]
     Active Substance: PREGABALIN
     Indication: STENOSIS
  5. LYRICA [Suspect]
     Active Substance: PREGABALIN
     Indication: SPINAL OSTEOARTHRITIS
  6. LYRICA [Suspect]
     Active Substance: PREGABALIN
     Indication: VERTEBRAL FORAMINAL STENOSIS
  7. LYRICA CR [Concomitant]
     Active Substance: PREGABALIN
     Dosage: 165 MG, EVERY HS (QHS)
     Route: 048

REACTIONS (6)
  - Intentional product misuse [Unknown]
  - Post-traumatic stress disorder [Unknown]
  - Brain injury [Unknown]
  - Drug dependence [Unknown]
  - Mental impairment [Unknown]
  - Malaise [Unknown]
